FAERS Safety Report 11009990 (Version 1)
Quarter: 2015Q2

REPORT INFORMATION
  Report Type: Spontaneous
  Country: JP (occurrence: JP)
  Receive Date: 20150410
  Receipt Date: 20150410
  Transmission Date: 20150821
  Serious: Yes (Other)
  Sender: FDA-Public Use
  Company Number: JP-SA-2015SA044143

PATIENT
  Age: 31 Year
  Sex: Male
  Weight: 60 kg

DRUGS (7)
  1. XELODA [Suspect]
     Active Substance: CAPECITABINE
     Indication: RECTAL CANCER
     Route: 048
     Dates: start: 20130403, end: 20130923
  2. SEROTONE [Concomitant]
     Active Substance: AZASETRON HYDROCHLORIDE
     Dates: start: 20130403, end: 20130902
  3. DECADRON [Concomitant]
     Active Substance: DEXAMETHASONE
     Dates: start: 20130403, end: 20130902
  4. ELPLAT [Suspect]
     Active Substance: OXALIPLATIN
     Indication: RECTAL CANCER
     Route: 041
     Dates: start: 20130403, end: 20130902
  5. ATARAX-P [Concomitant]
     Active Substance: HYDROXYZINE HYDROCHLORIDE
     Dates: start: 20130403, end: 20130902
  6. GASTER [Concomitant]
     Active Substance: FAMOTIDINE
     Dates: start: 20130403, end: 20130902
  7. VITAMIN B6 [Concomitant]
     Active Substance: PYRIDOXINE HYDROCHLORIDE

REACTIONS (2)
  - Splenomegaly [Not Recovered/Not Resolved]
  - Platelet count decreased [Recovered/Resolved]

NARRATIVE: CASE EVENT DATE: 20130406
